FAERS Safety Report 5520610-8 (Version None)
Quarter: 2007Q4

REPORT INFORMATION
  Report Type: 
  Country: None (occurrence: None)
  Receive Date: 20071119
  Receipt Date: 20071106
  Transmission Date: 20080405
  Serious: Yes (Other)
  Sender: FDA-Public Use
  Company Number: US-PFIZER INC-2007087451

PATIENT
  Sex: Female
  Weight: 81.8 kg

DRUGS (3)
  1. CHANTIX [Suspect]
     Indication: SMOKING CESSATION THERAPY
     Route: 048
  2. CLORAZEPATE [Concomitant]
     Route: 048
  3. VENLAFAXIINE HCL [Concomitant]
     Route: 048

REACTIONS (13)
  - ABNORMAL SENSATION IN EYE [None]
  - ANXIETY [None]
  - FATIGUE [None]
  - MIDDLE INSOMNIA [None]
  - NASOPHARYNGITIS [None]
  - NAUSEA [None]
  - OCULAR HYPERAEMIA [None]
  - PNEUMONIA [None]
  - PNEUMONIA BACTERIAL [None]
  - PRODUCTIVE COUGH [None]
  - SINUS DISORDER [None]
  - SLEEP DISORDER [None]
  - TREMOR [None]
